FAERS Safety Report 24061448 (Version 4)
Quarter: 2024Q3

REPORT INFORMATION
  Report Type: Spontaneous
  Country: US (occurrence: US)
  Receive Date: 20240708
  Receipt Date: 20240808
  Transmission Date: 20241017
  Serious: Yes (Other)
  Sender: AMERICAN REGENT
  Company Number: US-AMERICAN REGENT INC-2024002297

PATIENT
  Age: 27 Year
  Sex: Female

DRUGS (3)
  1. VENOFER [Suspect]
     Active Substance: IRON SUCROSE
     Indication: Iron deficiency anaemia
     Dosage: UNK, SINGLE
     Route: 065
     Dates: start: 20240702, end: 20240702
  2. VENOFER [Suspect]
     Active Substance: IRON SUCROSE
     Dosage: UNK, SINGLE
     Route: 065
     Dates: start: 20240712, end: 20240712
  3. VENOFER [Suspect]
     Active Substance: IRON SUCROSE
     Dosage: UNK, SINGLE
     Route: 065
     Dates: start: 20240719, end: 20240719

REACTIONS (2)
  - Drug ineffective [Unknown]
  - Off label use [Unknown]

NARRATIVE: CASE EVENT DATE: 20240702
